FAERS Safety Report 9241020 (Version 1)
Quarter: 2013Q2

REPORT INFORMATION
  Report Type: Spontaneous
  Country: US (occurrence: None)
  Receive Date: 20130418
  Receipt Date: 20130418
  Transmission Date: 20140414
  Serious: Yes (Other)
  Sender: FDA-Public Use
  Company Number: None

PATIENT
  Age: 69 Year
  Sex: Female
  Weight: 68.04 kg

DRUGS (3)
  1. ALVESCO [Suspect]
     Indication: ASTHMA
     Dosage: 2 PUFFS AM   IN AM  INHALER?2 PUFFS PM   IN PM   INHALER
     Route: 055
     Dates: start: 20130227, end: 20130313
  2. SYMBICORT [Concomitant]
  3. PREDNISONE [Concomitant]

REACTIONS (8)
  - Insomnia [None]
  - Middle insomnia [None]
  - Tremor [None]
  - Tic [None]
  - Agitation [None]
  - Vision blurred [None]
  - Pollakiuria [None]
  - Headache [None]
